FAERS Safety Report 7476522-6 (Version None)
Quarter: 2011Q2

REPORT INFORMATION
  Report Type: 
  Country: None (occurrence: None)
  Receive Date: 20110512
  Receipt Date: 20110506
  Transmission Date: 20111010
  Serious: Yes (Hospitalization, Disabling)
  Sender: FDA-Public Use
  Company Number: PHHY2011FR39437

PATIENT

DRUGS (6)
  1. RIVOTRIL [Concomitant]
     Dosage: 6 DROPS DAILY
  2. MAGNE-B6 [Concomitant]
     Dosage: 4 DF, UNK
  3. SPIROCTAN [Concomitant]
  4. GLEEVEC [Suspect]
     Indication: CHRONIC MYELOID LEUKAEMIA
     Dosage: UNK
     Dates: start: 20010901, end: 20110110
  5. ASPIRIN [Concomitant]
     Dosage: 75 MG, QD
  6. BISOPROLOL FUMARATE [Concomitant]
     Dosage: 5 MG, QD

REACTIONS (2)
  - SKIN ULCER [None]
  - DRUG INEFFECTIVE [None]
